FAERS Safety Report 8505670-4 (Version None)
Quarter: 2012Q3

REPORT INFORMATION
  Report Type: 
  Country: None (occurrence: None)
  Receive Date: 20120712
  Receipt Date: 20120702
  Transmission Date: 20120928
  Serious: No
  Sender: FDA-Public Use
  Company Number: US-JNJFOC-20120701382

PATIENT
  Sex: Male
  Weight: 73.48 kg

DRUGS (5)
  1. DURAGESIC-100 [Suspect]
     Indication: BACK INJURY
     Route: 062
     Dates: start: 20120306, end: 20120401
  2. LISINOPRIL [Concomitant]
     Indication: BLOOD PRESSURE
     Route: 048
     Dates: start: 20080101
  3. DURAGESIC-100 [Suspect]
     Route: 062
     Dates: start: 20120401
  4. SIMVASTATIN [Concomitant]
     Indication: BLOOD CHOLESTEROL
     Route: 048
     Dates: start: 20080101
  5. AMBIEN [Concomitant]
     Indication: SLEEP DISORDER
     Route: 048
     Dates: start: 20080101

REACTIONS (3)
  - DRUG EFFECT DECREASED [None]
  - WRONG TECHNIQUE IN DRUG USAGE PROCESS [None]
  - PRODUCT QUALITY ISSUE [None]
